FAERS Safety Report 25863817 (Version 1)
Quarter: 2025Q3

REPORT INFORMATION
  Report Type: Spontaneous
  Country: US (occurrence: None)
  Receive Date: 20250929
  Receipt Date: 20250929
  Transmission Date: 20251021
  Serious: Yes (Hospitalization)
  Sender: FDA-CTU
  Company Number: None

PATIENT
  Age: 69 Year
  Sex: Female

DRUGS (13)
  1. DUPIXENT [Suspect]
     Active Substance: DUPILUMAB
     Indication: Dermatitis atopic
     Dosage: OTHER FREQUENCY : EVERY OTHER WEEK;?
     Route: 058
     Dates: start: 20240719
  2. ATORVASTATIN [Concomitant]
     Active Substance: ATORVASTATIN
  3. FERROUS SULFATE [Concomitant]
     Active Substance: FERROUS SULFATE
  4. FUROSEMIDE [Concomitant]
     Active Substance: FUROSEMIDE
  5. GABAPENTIN [Concomitant]
     Active Substance: GABAPENTIN
  6. LEVOTHYROXINE 0.150MG [Concomitant]
  7. LISINOPRIL [Concomitant]
     Active Substance: LISINOPRIL
  8. MAGNESIUM OXIDE 400MG [Concomitant]
     Active Substance: MAGNESIUM OXIDE
  9. METFORMIN HYDROCHLORIDE [Concomitant]
     Active Substance: METFORMIN HYDROCHLORIDE
  10. PANTOPRAZOLE SODIUM [Concomitant]
     Active Substance: PANTOPRAZOLE SODIUM
  11. VENLAFAXINE ER 225MG [Concomitant]
  12. XARELTO [Concomitant]
     Active Substance: RIVAROXABAN
  13. TYLENOL 500MG E/S [Concomitant]

REACTIONS (3)
  - Pruritus [None]
  - Intestinal obstruction [None]
  - Decreased appetite [None]

NARRATIVE: CASE EVENT DATE: 20250905
